FAERS Safety Report 8910914 (Version 6)
Quarter: 2013Q3

REPORT INFORMATION
  Report Type: Spontaneous
  Country: US (occurrence: US)
  Receive Date: 20121116
  Receipt Date: 20130919
  Transmission Date: 20140515
  Serious: Yes (Hospitalization, Other)
  Sender: FDA-Public Use
  Company Number: US-009507513-1211USA005966

PATIENT
  Sex: Female
  Weight: 60.77 kg

DRUGS (12)
  1. FOSAMAX [Suspect]
     Indication: OSTEOPENIA
     Dosage: UNK
     Route: 048
     Dates: start: 200509, end: 200901
  2. FOSAMAX PLUS D [Suspect]
     Indication: OSTEOPENIA
     Route: 048
  3. ALENDRONATE SODIUM [Suspect]
     Indication: OSTEOPENIA
     Dosage: UNK
  4. BONIVA [Suspect]
     Indication: OSTEOPENIA
     Dosage: UNK
     Route: 048
     Dates: start: 20090428, end: 20110131
  5. BONIVA [Suspect]
     Indication: OSTEOPOROSIS
  6. VITAMIN E [Concomitant]
     Dosage: 400 DF, QD
     Dates: start: 1995
  7. ASCORBIC ACID [Concomitant]
     Dosage: UNK
     Dates: start: 1995
  8. VITAMIN D (UNSPECIFIED) [Concomitant]
     Dosage: UNK
     Dates: start: 1995
  9. CITRACAL [Concomitant]
     Indication: OSTEOPENIA
     Dosage: UNK, BID
     Dates: start: 1995
  10. GLUCOSAMINE [Concomitant]
     Dosage: 500 MG, QD
     Dates: start: 1995
  11. GINKGO [Concomitant]
     Dosage: 40 MG, QD
     Dates: start: 1995
  12. OMEGA-3 [Concomitant]
     Dosage: UNK
     Dates: start: 1995

REACTIONS (26)
  - Femur fracture [Unknown]
  - Intramedullary rod insertion [Unknown]
  - Knee operation [Unknown]
  - Breast operation [Unknown]
  - Breast reconstruction [Unknown]
  - Hip fracture [Unknown]
  - Fall [Unknown]
  - Mastectomy [Unknown]
  - Breast reconstruction [Unknown]
  - Breast cancer [Unknown]
  - Chemotherapy [Unknown]
  - Radius fracture [Unknown]
  - Low turnover osteopathy [Unknown]
  - Glaucoma [Unknown]
  - Arthritis [Unknown]
  - Deep vein thrombosis [Unknown]
  - Cataract [Unknown]
  - Lymphadenectomy [Unknown]
  - Spondylolisthesis [Unknown]
  - Intervertebral disc space narrowing [Unknown]
  - Vertebral foraminal stenosis [Unknown]
  - Osteoarthritis [Unknown]
  - Osteoarthritis [Unknown]
  - Bladder dilatation [Unknown]
  - Muscle spasms [Unknown]
  - Arthralgia [Unknown]
